FAERS Safety Report 17004569 (Version 4)
Quarter: 2023Q2

REPORT INFORMATION
  Report Type: Spontaneous
  Country: US (occurrence: US)
  Receive Date: 20191107
  Receipt Date: 20230525
  Transmission Date: 20230721
  Serious: Yes (Other)
  Sender: FDA-Public Use
  Company Number: US-PFIZER INC-2019476577

PATIENT
  Age: 77 Year
  Sex: Male

DRUGS (2)
  1. BOSULIF [Suspect]
     Active Substance: BOSUTINIB MONOHYDRATE
     Indication: Chronic myeloid leukaemia
     Dosage: 200 MG, DAILY
     Dates: start: 20181013
  2. BOSULIF [Suspect]
     Active Substance: BOSUTINIB MONOHYDRATE
     Dosage: 200 MG, DAILY
     Dates: start: 20181031

REACTIONS (7)
  - Cardiac disorder [Recovering/Resolving]
  - Transient ischaemic attack [Unknown]
  - Thyroid disorder [Recovering/Resolving]
  - Skin disorder [Recovering/Resolving]
  - Bradycardia [Unknown]
  - Fatigue [Unknown]
  - Rash [Unknown]
